FAERS Safety Report 13700795 (Version 1)
Quarter: 2017Q2

REPORT INFORMATION
  Report Type: Spontaneous
  Country: US (occurrence: US)
  Receive Date: 20170628
  Receipt Date: 20170628
  Transmission Date: 20170830
  Serious: Yes (Hospitalization, Disabling)
  Sender: FDA-Public Use
  Company Number: None

PATIENT
  Age: 25 Year
  Sex: Male
  Weight: 112.5 kg

DRUGS (8)
  1. CLONAZEPAM. [Suspect]
     Active Substance: CLONAZEPAM
     Indication: GENERALISED ANXIETY DISORDER
     Dosage: ?          OTHER STRENGTH:MG;QUANTITY:90 TABLET(S);?
     Route: 048
     Dates: start: 20160730, end: 20170627
  2. CABERGOLINE. [Concomitant]
     Active Substance: CABERGOLINE
  3. NUVIGIL [Concomitant]
     Active Substance: ARMODAFINIL
  4. HYDROCODONE [Concomitant]
     Active Substance: HYDROCODONE
  5. HCG [Concomitant]
     Active Substance: GONADOTROPHIN, CHORIONIC
  6. TESTOSTERONE. [Concomitant]
     Active Substance: TESTOSTERONE
  7. LEVOTHYROXINE. [Concomitant]
     Active Substance: LEVOTHYROXINE
  8. MASTRAZOLE [Concomitant]

REACTIONS (5)
  - Quality of life decreased [None]
  - Fear [None]
  - Impaired work ability [None]
  - Panic attack [None]
  - Withdrawal syndrome [None]

NARRATIVE: CASE EVENT DATE: 20160720
